FAERS Safety Report 11691591 (Version 2)
Quarter: 2022Q3

REPORT INFORMATION
  Report Type: Report from Study
  Country: US (occurrence: US)
  Receive Date: 20151102
  Receipt Date: 20220815
  Transmission Date: 20221027
  Serious: No
  Sender: FDA-Public Use
  Company Number: US-BAXALTA-2015BLT002507

PATIENT
  Age: 59 Year
  Sex: Male

DRUGS (1)
  1. HUMAN IMMUNOGLOBULIN G\HYALURONIDASE RECOMBINANT HUMAN [Suspect]
     Active Substance: HUMAN IMMUNOGLOBULIN G\HYALURONIDASE RECOMBINANT HUMAN
     Indication: Immunodeficiency common variable
     Dosage: 35 GRAM, MONTHLY
     Route: 065
     Dates: start: 201501

REACTIONS (3)
  - Platelet count decreased [Unknown]
  - Polycythaemia [Unknown]
  - Sinusitis [Unknown]

NARRATIVE: CASE EVENT DATE: 20151015
